FAERS Safety Report 9032083 (Version 1)
Quarter: 2013Q1

REPORT INFORMATION
  Report Type: Report from Study
  Country: TR (occurrence: TR)
  Receive Date: 20130125
  Receipt Date: 20130125
  Transmission Date: 20140127
  Serious: Yes (Hospitalization)
  Sender: FDA-Public Use
  Company Number: TR-US-EMD SERONO, INC.-7188805

PATIENT
  Age: 22 Year
  Sex: Male
  Weight: 65 kg

DRUGS (2)
  1. REBIF [Suspect]
     Indication: MULTIPLE SCLEROSIS
     Route: 058
     Dates: start: 201008, end: 20120917
  2. SUPRAFEN [Suspect]
     Indication: PAIN
     Route: 048
     Dates: start: 201008, end: 20120917

REACTIONS (1)
  - Pyrexia [Recovered/Resolved]
